FAERS Safety Report 25191663 (Version 1)
Quarter: 2025Q2

REPORT INFORMATION
  Report Type: Spontaneous
  Country: US (occurrence: None)
  Receive Date: 20250411
  Receipt Date: 20250411
  Transmission Date: 20250716
  Serious: Yes (Other)
  Sender: FDA-CTU
  Company Number: None

PATIENT
  Age: 67 Year
  Sex: Female
  Weight: 72.9 kg

DRUGS (4)
  1. VOQUEZNA [Suspect]
     Active Substance: VONOPRAZAN FUMARATE
     Indication: Gastrooesophageal reflux disease
     Dosage: 30 TABLET(S) DAILY ORAL
     Route: 048
     Dates: start: 20250128, end: 20250411
  2. PEPCID [Concomitant]
     Active Substance: FAMOTIDINE
  3. Gummy multivitamins [Concomitant]
  4. MATRICARIA RECUTITA [Concomitant]
     Active Substance: MATRICARIA RECUTITA

REACTIONS (6)
  - Muscular weakness [None]
  - Burning sensation [None]
  - Muscle spasms [None]
  - Oral pain [None]
  - Gingival pain [None]
  - Glossodynia [None]

NARRATIVE: CASE EVENT DATE: 20250410
